FAERS Safety Report 5931567-X (Version None)
Quarter: 2008Q4

REPORT INFORMATION
  Report Type: 
  Country: None (occurrence: None)
  Receive Date: 20081027
  Receipt Date: 20081016
  Transmission Date: 20090506
  Serious: Yes (Hospitalization)
  Sender: FDA-Public Use
  Company Number: FR-JNJFOC-20081004494

PATIENT
  Age: 47 Year
  Sex: Male
  Weight: 112 kg

DRUGS (6)
  1. REMICADE [Suspect]
     Indication: PSORIASIS
     Route: 042
  2. NICOTINE [Concomitant]
  3. COTAREG [Concomitant]
  4. COTAREG [Concomitant]
     Indication: HYPERTENSION
  5. AMLOD [Concomitant]
  6. AMLOD [Concomitant]
     Indication: HYPERTENSION

REACTIONS (2)
  - CORONARY ARTERY DISEASE [None]
  - MYOCARDIAL ISCHAEMIA [None]
